FAERS Safety Report 5889168-8 (Version None)
Quarter: 2008Q3

REPORT INFORMATION
  Report Type: 
  Country: None (occurrence: None)
  Receive Date: 20080919
  Receipt Date: 20080908
  Transmission Date: 20090109
  Serious: No
  Sender: FDA-Public Use
  Company Number: US-JNJFOC-20080902315

PATIENT
  Age: 33 Year
  Sex: Male
  Weight: 111.59 kg

DRUGS (1)
  1. INVEGA [Suspect]
     Indication: UNEVALUABLE EVENT
     Route: 048

REACTIONS (2)
  - TREMOR [None]
  - TRISMUS [None]
